FAERS Safety Report 8780461 (Version 1)
Quarter: 2012Q4

REPORT INFORMATION
  Report Type: Spontaneous
  Country: US (occurrence: None)
  Receive Date: 20120906
  Receipt Date: 20120906
  Transmission Date: 20130627
  Serious: Yes (Disabling)
  Sender: FDA-Public Use
  Company Number: None

PATIENT
  Age: 46 Year
  Sex: Male
  Weight: 87.09 kg

DRUGS (1)
  1. CIPROFLOXACIN HYDROCHLORIDE [Suspect]
     Indication: EPIDIDYMITIS
     Route: 048
     Dates: start: 20120821, end: 20120826

REACTIONS (5)
  - Vomiting [None]
  - Thinking abnormal [None]
  - Groin pain [None]
  - Anxiety [None]
  - Muscle tightness [None]
